FAERS Safety Report 25491921 (Version 1)
Quarter: 2025Q2

REPORT INFORMATION
  Report Type: Spontaneous
  Country: CN (occurrence: CN)
  Receive Date: 20250630
  Receipt Date: 20250630
  Transmission Date: 20250717
  Serious: Yes (Hospitalization)
  Sender: CHENGDU SUNCADIA MEDICINE CO., LTD.
  Company Number: CN-Chengdu Suncadia Medicine Co., Ltd.-2179608

PATIENT
  Age: 12 Month

DRUGS (1)
  1. TACROLIMUS [Suspect]
     Active Substance: TACROLIMUS
     Indication: Immunosuppression

REACTIONS (1)
  - Autoimmune haemolytic anaemia [Recovered/Resolved]
